FAERS Safety Report 7954073-X (Version None)
Quarter: 2011Q4

REPORT INFORMATION
  Report Type: 
  Country: None (occurrence: None)
  Receive Date: 20111202
  Receipt Date: 20111126
  Transmission Date: 20120403
  Serious: Yes (Hospitalization)
  Sender: FDA-Public Use
  Company Number: US-BAYER-2011-005902

PATIENT
  Age: 27 Year
  Sex: Female
  Weight: 77.098 kg

DRUGS (4)
  1. DROSPIRENONE AND ETHINYL ESTRADIOL [Suspect]
     Indication: ACNE
     Dosage: UNK
     Dates: start: 20080601, end: 20090101
  2. DROSPIRENONE AND ETHINYL ESTRADIOL [Suspect]
     Indication: MENSTRUATION IRREGULAR
  3. YASMIN [Suspect]
     Indication: ACNE
     Dosage: UNK
     Dates: start: 20070801, end: 20080601
  4. YASMIN [Suspect]
     Indication: MENSTRUATION IRREGULAR

REACTIONS (7)
  - ANXIETY [None]
  - FEAR [None]
  - PSYCHOLOGICAL TRAUMA [None]
  - ANHEDONIA [None]
  - PAIN [None]
  - INJURY [None]
  - DEEP VEIN THROMBOSIS [None]
